FAERS Safety Report 9247729 (Version 1)
Quarter: 2013Q1

REPORT INFORMATION
  Report Type: Spontaneous
  Country: US (occurrence: None)
  Receive Date: 20121130
  Receipt Date: 20121130
  Transmission Date: 20140127
  Serious: Yes (Other)
  Sender: FDA-Public Use
  Company Number: 353920

PATIENT
  Age: 21 Year
  Sex: Female
  Weight: 76.2 kg

DRUGS (2)
  1. NOVOLOG MIX 70/30 FLEX PEN (INSULIN ASPART) SUSPENSION FOR INJECTION, 100U/ML [Suspect]
     Route: 058
     Dates: start: 2006
  2. LEVEMIR (INSULIN DETEMIR) SOLUTION FOR INJECTION [Concomitant]

REACTIONS (5)
  - Hypoglycaemic unconsciousness [None]
  - Abdominal pain upper [None]
  - Nausea [None]
  - Headache [None]
  - Fatigue [None]
